FAERS Safety Report 9680763 (Version 1)
Quarter: 2013Q4

REPORT INFORMATION
  Report Type: Report from Study
  Country: JP (occurrence: JP)
  Receive Date: 20131111
  Receipt Date: 20131111
  Transmission Date: 20140711
  Serious: No
  Sender: FDA-Public Use
  Company Number: JP-JNJFOC-20131100715

PATIENT
  Age: 52 Year
  Sex: Male
  Weight: 70 kg

DRUGS (13)
  1. STELARA [Suspect]
     Indication: PSORIATIC ARTHROPATHY
     Route: 058
     Dates: start: 20111027, end: 20111027
  2. STELARA [Suspect]
     Indication: PSORIATIC ARTHROPATHY
     Route: 058
     Dates: start: 20111122, end: 20111122
  3. STELARA [Suspect]
     Indication: PSORIATIC ARTHROPATHY
     Route: 058
     Dates: start: 20120509, end: 20120509
  4. STELARA [Suspect]
     Indication: PSORIATIC ARTHROPATHY
     Route: 058
     Dates: start: 20120802, end: 20120802
  5. STELARA [Suspect]
     Indication: PSORIATIC ARTHROPATHY
     Route: 058
     Dates: start: 20121025
  6. STELARA [Suspect]
     Indication: PSORIATIC ARTHROPATHY
     Route: 058
     Dates: start: 20120214, end: 20120214
  7. ISCOTIN [Suspect]
     Indication: PROPHYLAXIS
     Route: 048
     Dates: start: 20111006, end: 20111220
  8. PYRIDOXAL PHOSPHATE [Suspect]
     Indication: PROPHYLAXIS
     Route: 048
     Dates: start: 20111006, end: 20111220
  9. ANTEBATE [Concomitant]
     Indication: PSORIATIC ARTHROPATHY
     Route: 061
     Dates: end: 20120117
  10. LOXONIN [Concomitant]
     Indication: PSORIATIC ARTHROPATHY
     Route: 048
     Dates: start: 20120313, end: 20120614
  11. LOXONIN [Concomitant]
     Indication: PSORIATIC ARTHROPATHY
     Route: 048
     Dates: end: 20120312
  12. TAKEPRON [Concomitant]
     Indication: PROPHYLAXIS
     Route: 048
     Dates: start: 20111122, end: 20120510
  13. AMLODIN [Concomitant]
     Route: 048
     Dates: end: 20120711

REACTIONS (1)
  - Hepatic function abnormal [Recovered/Resolved]
